FAERS Safety Report 23381850 (Version 1)
Quarter: 2024Q1

REPORT INFORMATION
  Report Type: Report from Study
  Country: US (occurrence: None)
  Receive Date: 20240109
  Receipt Date: 20240109
  Transmission Date: 20240409
  Serious: Yes (Death)
  Sender: FDA-Public Use
  Company Number: 2024A005639

PATIENT
  Age: 16986 Day
  Sex: Male
  Weight: 96.5 kg

DRUGS (5)
  1. CALQUENCE [Suspect]
     Active Substance: ACALABRUTINIB
     Indication: Mantle cell lymphoma
     Route: 048
  2. IRON [Concomitant]
     Active Substance: IRON
  3. LOSARTAN [Concomitant]
     Active Substance: LOSARTAN
  4. IRON\VITAMINS [Concomitant]
     Active Substance: IRON\VITAMINS
  5. ZYRTEC [Concomitant]
     Active Substance: CETIRIZINE HYDROCHLORIDE

REACTIONS (1)
  - Hypervolaemia [Fatal]

NARRATIVE: CASE EVENT DATE: 20240108
